FAERS Safety Report 23362101 (Version 1)
Quarter: 2024Q1

REPORT INFORMATION
  Report Type: Spontaneous
  Country: US (occurrence: None)
  Receive Date: 20240102
  Receipt Date: 20240102
  Transmission Date: 20240410
  Serious: Yes (Hospitalization)
  Sender: FDA-Public Use
  Company Number: None

PATIENT
  Age: 58 Year
  Sex: Female

DRUGS (2)
  1. NUCALA [Suspect]
     Active Substance: MEPOLIZUMAB
     Indication: Nasal polyps
     Dosage: 1 ML EVERY 4 WEEKS SUBCUTANEOUS?
     Route: 058
     Dates: start: 20231005, end: 20231204
  2. NUCALA [Concomitant]
     Active Substance: MEPOLIZUMAB
     Dates: start: 20231005, end: 20231204

REACTIONS (3)
  - Ear infection [None]
  - Wheezing [None]
  - Nasal congestion [None]

NARRATIVE: CASE EVENT DATE: 20240101
